FAERS Safety Report 18070342 (Version 1)
Quarter: 2020Q3

REPORT INFORMATION
  Report Type: Spontaneous
  Country: PL (occurrence: PL)
  Receive Date: 20200727
  Receipt Date: 20200727
  Transmission Date: 20201103
  Serious: Yes (Other)
  Sender: FDA-Public Use
  Company Number: PL-TEVA-2020-PL-1804629

PATIENT
  Age: 82 Year
  Sex: Female
  Weight: 79 kg

DRUGS (6)
  1. DULOXETIN [Suspect]
     Active Substance: DULOXETINE
     Indication: DEPRESSION
     Route: 048
     Dates: end: 20181126
  2. ACARD [Concomitant]
     Active Substance: ASPIRIN
     Indication: MYOCARDIAL ISCHAEMIA
     Dosage: ADMINISTERED FOR YEARS, UNIT DOSE: 75 MG
     Route: 048
     Dates: end: 20181118
  3. NITRENDYPINA [Concomitant]
     Active Substance: NITRENDIPINE
     Indication: ESSENTIAL HYPERTENSION
     Dosage: ADMINISTERED FOR YEARS, UNIT DOSE: 10 MG
     Route: 048
  4. IPRES LONG [Concomitant]
     Indication: ESSENTIAL HYPERTENSION
     Dosage: ADMINISTERED FOR YEARS, UNIT DOSE: 1.5 YEARS
     Route: 048
  5. LORATADINE. [Concomitant]
     Active Substance: LORATADINE
     Indication: PRURITUS
     Dosage: ADMINISTERED FOR YEARS, UNIT DOSE: 10 MG
     Route: 048
  6. PRESTARIUM [Concomitant]
     Active Substance: PERINDOPRIL
     Indication: ESSENTIAL HYPERTENSION
     Dosage: ADMINISTERED FOR YEARS, UNIT DOSE: 10 MG
     Route: 048

REACTIONS (2)
  - Cerebrovascular accident [Recovering/Resolving]
  - Coagulopathy [Recovering/Resolving]

NARRATIVE: CASE EVENT DATE: 20181123
